FAERS Safety Report 25753055 (Version 2)
Quarter: 2025Q3

REPORT INFORMATION
  Report Type: Spontaneous
  Country: CN (occurrence: CN)
  Receive Date: 20250902
  Receipt Date: 20250914
  Transmission Date: 20251021
  Serious: Yes (Other)
  Sender: BEIGENE
  Company Number: CN-ROCHE-10000033356

PATIENT
  Age: 51 Year
  Weight: 63.7 kg

DRUGS (28)
  1. BRUKINSA [Suspect]
     Active Substance: ZANUBRUTINIB
     Indication: Diffuse large B-cell lymphoma
  2. METHYLPREDNISOLONE [Suspect]
     Active Substance: METHYLPREDNISOLONE
     Indication: Diffuse large B-cell lymphoma
  3. VINCRISTINE [Suspect]
     Active Substance: VINCRISTINE
     Indication: Diffuse large B-cell lymphoma
  4. METHOTREXATE [Suspect]
     Active Substance: METHOTREXATE
     Indication: Diffuse large B-cell lymphoma
  5. METHYLPREDNISOLONE SODIUM SUCCINATE [Suspect]
     Active Substance: METHYLPREDNISOLONE SODIUM SUCCINATE
     Indication: Diffuse large B-cell lymphoma
  6. POLATUZUMAB VEDOTIN [Suspect]
     Active Substance: POLATUZUMAB VEDOTIN
     Indication: Diffuse large B-cell lymphoma
  7. RITUXIMAB [Suspect]
     Active Substance: RITUXIMAB
     Indication: Diffuse large B-cell lymphoma
  8. LORNOXICAM [Suspect]
     Active Substance: LORNOXICAM
     Indication: Diffuse large B-cell lymphoma
  9. CYCLOPHOSPHAMIDE [Suspect]
     Active Substance: CYCLOPHOSPHAMIDE
     Indication: Diffuse large B-cell lymphoma
  10. DOXORUBICIN HYDROCHLORIDE [Suspect]
     Active Substance: DOXORUBICIN HYDROCHLORIDE
     Indication: Diffuse large B-cell lymphoma
  11. SULFAMETHOXAZOLE [Concomitant]
     Active Substance: SULFAMETHOXAZOLE
  12. CEFTAZIDIME [Concomitant]
     Active Substance: CEFTAZIDIME
  13. GRANULOCYTE COLONY-STIMULATING FACTOR NOS [Concomitant]
     Active Substance: GRANULOCYTE COLONY-STIMULATING FACTOR NOS
  14. LIDOCAINE HYDROCHLORIDE [Concomitant]
     Active Substance: LIDOCAINE HYDROCHLORIDE
  15. MEROPENEM [Concomitant]
     Active Substance: MEROPENEM
  16. LACTATED RINGERS SOLUTION [Concomitant]
     Active Substance: CALCIUM CHLORIDE\POTASSIUM CHLORIDE\SODIUM CHLORIDE\SODIUM LACTATE
  17. LEUCOVORIN CALCIUM [Concomitant]
     Active Substance: LEUCOVORIN CALCIUM
  18. ROXADUSTAT [Concomitant]
     Active Substance: ROXADUSTAT
  19. FUROSEMIDE [Concomitant]
     Active Substance: FUROSEMIDE
  20. METHANDROSTENOLONE [Concomitant]
     Active Substance: METHANDROSTENOLONE
  21. METOCLOPRAMIDE HYDROCHLORIDE [Concomitant]
     Active Substance: METOCLOPRAMIDE HYDROCHLORIDE
  22. DEXAMETHASONE SODIUM PHOSPHATE [Concomitant]
     Active Substance: DEXAMETHASONE SODIUM PHOSPHATE
  23. VANCOMYCIN HYDROCHLORIDE [Concomitant]
     Active Substance: VANCOMYCIN HYDROCHLORIDE
  24. FEBUXOSTAT [Concomitant]
     Active Substance: FEBUXOSTAT
  25. SODIUM BICARBONATE [Concomitant]
     Active Substance: SODIUM BICARBONATE
  26. FLUCONAZOLE [Concomitant]
     Active Substance: FLUCONAZOLE
  27. PROMETHAZINE [Concomitant]
     Active Substance: PROMETHAZINE HYDROCHLORIDE
  28. ENTECAVIR [Concomitant]
     Active Substance: ENTECAVIR

REACTIONS (16)
  - Myelosuppression [Unknown]
  - Hypokalaemia [Unknown]
  - Renal failure [Unknown]
  - Hypernatraemia [Unknown]
  - Lymphocyte count decreased [Unknown]
  - Alanine aminotransferase increased [Unknown]
  - Sinus tachycardia [Unknown]
  - White blood cell count decreased [Unknown]
  - Lymphocyte count abnormal [Unknown]
  - Hypomagnesaemia [Unknown]
  - Eyelid disorder [Unknown]
  - Hypermagnesaemia [Unknown]
  - Platelet count decreased [Unknown]
  - Anaemia [Unknown]
  - Hypocalcaemia [Unknown]
  - Off label use [Unknown]
